FAERS Safety Report 4768747-5 (Version None)
Quarter: 2005Q3

REPORT INFORMATION
  Report Type: 
  Country: None (occurrence: None)
  Receive Date: 20050914
  Receipt Date: 20050908
  Transmission Date: 20060218
  Serious: Yes (Hospitalization)
  Sender: FDA-Public Use
  Company Number: FR-GLAXOSMITHKLINE-B0393637A

PATIENT
  Age: 58 Year
  Sex: Male

DRUGS (2)
  1. AUGMENTIN [Suspect]
     Dosage: 1UNIT SINGLE DOSE
     Route: 048
     Dates: start: 20020106, end: 20020106
  2. ASPEGIC 1000 [Concomitant]
     Dosage: 1000MG PER DAY
     Route: 048
     Dates: start: 20020102, end: 20020106

REACTIONS (3)
  - ANAPHYLACTIC SHOCK [None]
  - ERYTHEMA [None]
  - LOSS OF CONSCIOUSNESS [None]
